FAERS Safety Report 14815070 (Version 1)
Quarter: 2018Q2

REPORT INFORMATION
  Report Type: Report from Study
  Country: DE (occurrence: DE)
  Receive Date: 20180426
  Receipt Date: 20180426
  Transmission Date: 20180711
  Serious: Yes (Life-Threatening, Hospitalization)
  Sender: FDA-Public Use
  Company Number: DE-TEVA-2018-DE-886115

PATIENT
  Age: 22 Year
  Sex: Male

DRUGS (5)
  1. METHOTREXAT [Suspect]
     Active Substance: METHOTREXATE
     Indication: PSORIATIC ARTHROPATHY
     Dosage: 10MG
     Route: 058
     Dates: start: 20170805, end: 201801
  2. CIMZIA [Suspect]
     Active Substance: CERTOLIZUMAB PEGOL
     Indication: PSORIATIC ARTHROPATHY
     Dosage: 200MG
     Route: 058
     Dates: start: 201802, end: 20180312
  3. COSENTYX [Suspect]
     Active Substance: SECUKINUMAB
     Indication: PSORIASIS
     Dosage: 300MG
     Route: 058
     Dates: start: 20160217, end: 20170805
  4. HUMIRA [Suspect]
     Active Substance: ADALIMUMAB
     Indication: PSORIATIC ARTHROPATHY
     Dosage: 40MG
     Route: 058
     Dates: start: 201711, end: 201801
  5. CICLOSPORIN PRO [Suspect]
     Active Substance: CYCLOSPORINE
     Dosage: 300MG
     Dates: start: 20160127, end: 20170805

REACTIONS (1)
  - Testis cancer [Not Recovered/Not Resolved]

NARRATIVE: CASE EVENT DATE: 20180326
